FAERS Safety Report 6574968-1 (Version None)
Quarter: 2010Q1

REPORT INFORMATION
  Report Type: 
  Country: None (occurrence: None)
  Receive Date: 20100209
  Receipt Date: 20100128
  Transmission Date: 20100710
  Serious: Yes (Hospitalization, Other)
  Sender: FDA-Public Use
  Company Number: US-NOVOPROD-303735

PATIENT
  Sex: Female
  Weight: 81.633 kg

DRUGS (1)
  1. LEVEMIR [Suspect]
     Indication: TYPE 2 DIABETES MELLITUS
     Dosage: 55 IU, QD
     Route: 058
     Dates: start: 20080101

REACTIONS (5)
  - BLOOD GLUCOSE INCREASED [None]
  - DRUG DISPENSING ERROR [None]
  - HEART RATE INCREASED [None]
  - HEART RATE IRREGULAR [None]
  - VENTRICULAR EXTRASYSTOLES [None]
